FAERS Safety Report 4956425-9 (Version None)
Quarter: 2006Q1

REPORT INFORMATION
  Report Type: 
  Country: None (occurrence: None)
  Receive Date: 20060328
  Receipt Date: 20060328
  Transmission Date: 20060701
  Serious: Yes (Life-Threatening, Disabling)
  Sender: FDA-Public Use
  Company Number: None

PATIENT
  Age: 58 Year
  Sex: Male
  Weight: 70.3075 kg

DRUGS (1)
  1. AVELOX [Suspect]
     Indication: LUNG INFECTION
     Dosage: ONE ONE PER DAY
     Dates: start: 20060116, end: 20060122

REACTIONS (1)
  - HEART RATE IRREGULAR [None]
